FAERS Safety Report 16911791 (Version 1)
Quarter: 2019Q4

REPORT INFORMATION
  Report Type: Report from Study
  Country: JP (occurrence: JP)
  Receive Date: 20191014
  Receipt Date: 20191014
  Transmission Date: 20200122
  Serious: Yes (Other)
  Sender: FDA-Public Use
  Company Number: JP-SA-2019SA147221

PATIENT
  Age: 51 Year
  Sex: Female
  Weight: 48 kg

DRUGS (2)
  1. VANDETANIB. [Suspect]
     Active Substance: VANDETANIB
     Dosage: 150 MG, QD
     Route: 048
  2. VANDETANIB. [Suspect]
     Active Substance: VANDETANIB
     Indication: MEDULLARY THYROID CANCER
     Dosage: STARTED WITH A HALF DOSE (150 MG) AND GRADUALLY INCREASED
     Route: 048
     Dates: start: 20151224

REACTIONS (8)
  - Electrocardiogram QT prolonged [Unknown]
  - Rash [Unknown]
  - Diarrhoea [Unknown]
  - Carcinoembryonic antigen increased [Unknown]
  - Palmar-plantar erythrodysaesthesia syndrome [Unknown]
  - Blood calcitonin abnormal [Unknown]
  - Pain in extremity [Unknown]
  - Tremor [Unknown]

NARRATIVE: CASE EVENT DATE: 2017
